FAERS Safety Report 7089203-8 (Version None)
Quarter: 2010Q4

REPORT INFORMATION
  Report Type: 
  Country: None (occurrence: None)
  Receive Date: 20101029
  Receipt Date: 20101018
  Transmission Date: 20110411
  Serious: Yes (Other)
  Sender: FDA-Public Use
  Company Number: B0681246A

PATIENT
  Age: 28 Year
  Sex: Female

DRUGS (1)
  1. RANITIDINE HYDROCHLORIDE [Suspect]
     Indication: PROPHYLAXIS
     Dosage: INTRAVENOUS
     Route: 042

REACTIONS (8)
  - ANAPHYLACTIC REACTION [None]
  - BRONCHOSPASM [None]
  - CAESAREAN SECTION [None]
  - DRUG EXPOSURE DURING PREGNANCY [None]
  - HYPOTENSION [None]
  - OXYGEN SATURATION DECREASED [None]
  - RASH MACULO-PAPULAR [None]
  - RHONCHI [None]
